FAERS Safety Report 6543434-1 (Version None)
Quarter: 2010Q1

REPORT INFORMATION
  Report Type: 
  Country: None (occurrence: None)
  Receive Date: 20100120
  Receipt Date: 20091201
  Transmission Date: 20100710
  Serious: Yes (Hospitalization)
  Sender: FDA-Public Use
  Company Number: A0832063A

PATIENT
  Age: 64 Year
  Sex: Female
  Weight: 59.5 kg

DRUGS (6)
  1. AVANDIA [Suspect]
     Dosage: 8MG PER DAY
     Route: 048
     Dates: start: 19990101, end: 20070101
  2. AMARYL [Concomitant]
  3. NEURONTIN [Concomitant]
  4. AMITRIPTYLINE HCL [Concomitant]
  5. DIOVAN [Concomitant]
  6. DIAZIDE [Concomitant]

REACTIONS (5)
  - CARDIAC DISORDER [None]
  - CARDIAC FAILURE CONGESTIVE [None]
  - CHEST PAIN [None]
  - CONGESTIVE CARDIOMYOPATHY [None]
  - DIASTOLIC DYSFUNCTION [None]
